FAERS Safety Report 6545708-7 (Version None)
Quarter: 2010Q1

REPORT INFORMATION
  Report Type: 
  Country: None (occurrence: None)
  Receive Date: 20100121
  Receipt Date: 20100112
  Transmission Date: 20100710
  Serious: Yes (Other)
  Sender: FDA-Public Use
  Company Number: PHHY2009CA41886

PATIENT
  Sex: Male

DRUGS (2)
  1. GLEEVEC [Suspect]
     Indication: CHRONIC MYELOID LEUKAEMIA
     Dosage: 400 MG/DAY
     Route: 048
     Dates: start: 20040131
  2. NORFLEX [Concomitant]
     Indication: BACK PAIN
     Dosage: 100 MG/DAY

REACTIONS (4)
  - ARTHRALGIA [None]
  - HAEMATOMA [None]
  - MUSCULAR DYSTROPHY [None]
  - PAIN IN EXTREMITY [None]
